FAERS Safety Report 15153028 (Version 2)
Quarter: 2018Q3

REPORT INFORMATION
  Report Type: Spontaneous
  Country: US (occurrence: US)
  Receive Date: 20180717
  Receipt Date: 20180720
  Transmission Date: 20181010
  Serious: No
  Sender: FDA-Public Use
  Company Number: US-PFIZER INC-2018285899

PATIENT
  Age: 70 Year
  Sex: Female
  Weight: 77.11 kg

DRUGS (1)
  1. GABAPENTIN. [Suspect]
     Active Substance: GABAPENTIN
     Indication: SCIATICA
     Dosage: 100 MG, DAILY(AT BEDTIME FOR 3 DAYS)
     Route: 048
     Dates: start: 20180705, end: 20180708

REACTIONS (2)
  - Headache [Unknown]
  - Drug ineffective for unapproved indication [Unknown]

NARRATIVE: CASE EVENT DATE: 201807
